FAERS Safety Report 19574806 (Version 6)
Quarter: 2022Q2

REPORT INFORMATION
  Report Type: Report from Study
  Country: FR (occurrence: FR)
  Receive Date: 20210719
  Receipt Date: 20220622
  Transmission Date: 20220721
  Serious: Yes (Other)
  Sender: FDA-Public Use
  Company Number: PHHY2019FR139410

PATIENT
  Age: 53 Year
  Sex: Female
  Weight: 65 kg

DRUGS (7)
  1. COSENTYX [Suspect]
     Active Substance: SECUKINUMAB
     Indication: Psoriatic arthropathy
     Dosage: 150 MG (PREFILLED SYRINGE)
     Route: 065
     Dates: start: 20170213, end: 20170411
  2. COSENTYX [Suspect]
     Active Substance: SECUKINUMAB
     Dosage: 300 MG (AUTO INJECTOR)
     Route: 065
     Dates: start: 20170412, end: 20181212
  3. COSENTYX [Suspect]
     Active Substance: SECUKINUMAB
     Dosage: 150 MG (AUTO INJECTOR)
     Route: 065
     Dates: start: 20181213, end: 20190819
  4. COSENTYX [Suspect]
     Active Substance: SECUKINUMAB
     Dosage: 150 MG
     Route: 065
     Dates: start: 20181213, end: 20200202
  5. COSENTYX [Suspect]
     Active Substance: SECUKINUMAB
     Dosage: 150 MG  (AUTO INJECTOR)
     Route: 065
     Dates: start: 20190820, end: 202002
  6. COSENTYX [Suspect]
     Active Substance: SECUKINUMAB
     Dosage: 150 MG (AUTO INJECTOR)
     Route: 065
     Dates: start: 202003, end: 202012
  7. COSENTYX [Suspect]
     Active Substance: SECUKINUMAB
     Dosage: 150 MG  (AUTO INJECTOR)
     Route: 065
     Dates: start: 202012, end: 20210408

REACTIONS (5)
  - Appendicitis [Recovered/Resolved]
  - Gingivitis [Not Recovered/Not Resolved]
  - Rheumatic disorder [Recovered/Resolved]
  - Rheumatic disorder [Not Recovered/Not Resolved]
  - Haemorrhoids [Recovered/Resolved]

NARRATIVE: CASE EVENT DATE: 20181217
